FAERS Safety Report 8170220-1 (Version None)
Quarter: 2012Q1

REPORT INFORMATION
  Report Type: 
  Country: None (occurrence: None)
  Receive Date: 20120228
  Receipt Date: 20120214
  Transmission Date: 20120608
  Serious: Yes (Hospitalization, Other)
  Sender: FDA-Public Use
  Company Number: BE-CELGENEUS-013-21880-11103541

PATIENT
  Sex: Male
  Weight: 102 kg

DRUGS (15)
  1. REVLIMID [Suspect]
     Dosage: 25 MILLIGRAM
     Route: 048
     Dates: start: 20111105, end: 20111125
  2. REVLIMID [Suspect]
     Dosage: 25 MILLIGRAM
     Route: 048
     Dates: start: 20111223, end: 20120112
  3. PERINDOPRIL ERBUMINE [Concomitant]
     Dosage: 10 MILLIGRAM
     Route: 048
  4. ADRIAMYCIN PFS [Concomitant]
     Indication: MULTIPLE MYELOMA
     Route: 041
     Dates: start: 20111017, end: 20111017
  5. REVLIMID [Suspect]
     Indication: MULTIPLE MYELOMA
     Dosage: 25 MILLIGRAM
     Route: 048
     Dates: start: 20111017, end: 20111025
  6. LMWH [Concomitant]
     Indication: PROPHYLAXIS
     Route: 065
  7. RANITIDINE [Concomitant]
     Indication: PROPHYLAXIS
     Dosage: 150 MILLIGRAM
     Route: 048
     Dates: start: 20111023
  8. BISOPROLOL FUMARATE [Concomitant]
     Dosage: 10 MILLIGRAM
     Route: 048
  9. DEXAMETHASONE [Concomitant]
     Route: 048
     Dates: start: 20111115, end: 20111204
  10. ASPIRIN [Concomitant]
     Dosage: 80 MILLIGRAM
     Route: 048
  11. REVLIMID [Suspect]
     Dosage: 25 MILLIGRAM
     Route: 048
     Dates: start: 20111203, end: 20111210
  12. CRESTOR [Concomitant]
     Dosage: 10 MILLIGRAM
     Route: 048
  13. DEXAMETHASONE [Concomitant]
     Route: 048
     Dates: start: 20111205
  14. DEXAMETHASONE [Concomitant]
     Indication: MULTIPLE MYELOMA
     Route: 048
     Dates: start: 20111017, end: 20111114
  15. BISOPROLOL FUMARATE [Concomitant]
     Dosage: 10 MILLIGRAM
     Route: 048

REACTIONS (4)
  - PNEUMONIA [None]
  - CYTOLYTIC HEPATITIS [None]
  - LUNG DISORDER [None]
  - LEFT VENTRICULAR DYSFUNCTION [None]
